FAERS Safety Report 7073180-X (Version None)
Quarter: 2010Q4

REPORT INFORMATION
  Report Type: 
  Country: None (occurrence: None)
  Receive Date: 20101029
  Receipt Date: 20101020
  Transmission Date: 20110411
  Serious: Yes (Other)
  Sender: FDA-Public Use
  Company Number: B0674801A

PATIENT
  Sex: Female

DRUGS (11)
  1. ALLI [Suspect]
     Dates: start: 20090801
  2. GLICLAZIDE [Concomitant]
     Dates: start: 20090101
  3. LOSARTAN [Concomitant]
     Dates: start: 20090101
  4. CARVEDILOL [Concomitant]
     Dates: start: 20090101
  5. COZAAR [Concomitant]
  6. DIAMICRON [Concomitant]
     Dosage: 2TAB PER DAY
     Route: 065
  7. ANAFRANIL [Concomitant]
  8. LEPONEX [Concomitant]
  9. GINKGO-BILOBA [Concomitant]
  10. FENOFIBRATE [Concomitant]
  11. HALDOL [Concomitant]
     Route: 030

REACTIONS (12)
  - CARDIOVASCULAR DISORDER [None]
  - DIZZINESS [None]
  - ECG SIGNS OF MYOCARDIAL ISCHAEMIA [None]
  - EPIGASTRIC DISCOMFORT [None]
  - HYPERHIDROSIS [None]
  - MALAISE [None]
  - NAUSEA [None]
  - PALPITATIONS [None]
  - PRODUCT QUALITY ISSUE [None]
  - SUPRAVENTRICULAR TACHYCARDIA [None]
  - SYNCOPE [None]
  - TACHYARRHYTHMIA [None]
